FAERS Safety Report 5987121-7 (Version None)
Quarter: 2008Q4

REPORT INFORMATION
  Report Type: 
  Country: None (occurrence: None)
  Receive Date: 20081209
  Receipt Date: 20080411
  Transmission Date: 20090506
  Serious: No
  Sender: FDA-Public Use
  Company Number: US-AMGEN-KDL274157

PATIENT
  Sex: Female

DRUGS (2)
  1. ENBREL [Suspect]
     Indication: RHEUMATOID ARTHRITIS
     Route: 058
     Dates: start: 20040220
  2. METHOTREXATE [Concomitant]

REACTIONS (6)
  - ARTHROPOD BITE [None]
  - ERYTHEMA [None]
  - IMPETIGO [None]
  - INJECTION SITE PAIN [None]
  - PRURITUS [None]
  - SLEEP APNOEA SYNDROME [None]
